FAERS Safety Report 6792997-X (Version None)
Quarter: 2010Q2

REPORT INFORMATION
  Report Type: 
  Country: None (occurrence: None)
  Receive Date: 20100624
  Receipt Date: 20081126
  Transmission Date: 20101027
  Serious: No
  Sender: FDA-Public Use
  Company Number: US-PFIZER INC-2008100995

PATIENT
  Sex: Female

DRUGS (2)
  1. AROMASIN [Suspect]
  2. ANASTROZOLE [Suspect]

REACTIONS (2)
  - BONE PAIN [None]
  - BURNING SENSATION [None]
